FAERS Safety Report 24886165 (Version 1)
Quarter: 2025Q1

REPORT INFORMATION
  Report Type: Other
  Country: JP (occurrence: JP)
  Receive Date: 20250125
  Receipt Date: 20250125
  Transmission Date: 20250409
  Serious: Yes (Other)
  Sender: B BRAUN
  Company Number: JP-B.Braun Medical Inc.-2169753

PATIENT
  Age: 48 Year
  Sex: Male
  Weight: 98 kg

DRUGS (6)
  1. EPINEPHRINE\LIDOCAINE HYDROCHLORIDE [Suspect]
     Active Substance: EPINEPHRINE\LIDOCAINE HYDROCHLORIDE
     Indication: Anaesthesia
  2. REMIFENTANIL [Concomitant]
     Active Substance: REMIFENTANIL
  3. EPINEPHRINE [Concomitant]
     Active Substance: EPINEPHRINE
  4. FENTANYL [Concomitant]
     Active Substance: FENTANYL
  5. ROCURONIUM [Concomitant]
     Active Substance: ROCURONIUM BROMIDE
  6. REMIMAZOLAM [Concomitant]
     Active Substance: REMIMAZOLAM

REACTIONS (3)
  - Local anaesthetic systemic toxicity [Recovered/Resolved]
  - Electrocardiogram QT prolonged [Recovered/Resolved]
  - Electrocardiogram QRS complex prolonged [Recovered/Resolved]
